FAERS Safety Report 9930204 (Version 2)
Quarter: 2014Q2

REPORT INFORMATION
  Report Type: Report from Study
  Country: US (occurrence: US)
  Receive Date: 20140227
  Receipt Date: 20140528
  Transmission Date: 20141212
  Serious: Yes (Hospitalization)
  Sender: FDA-Public Use
  Company Number: US-B.I. PHARMACEUTICALS,INC./RIDGEFIELD-2014-BI-08297BI

PATIENT
  Sex: Male

DRUGS (2)
  1. GILOTRIF [Suspect]
     Indication: NON-SMALL CELL LUNG CANCER
     Dosage: 40 MG
     Route: 048
     Dates: start: 20140114
  2. GILOTRIF [Suspect]
     Dosage: 20 MG
     Route: 048
     Dates: start: 20140114

REACTIONS (8)
  - Dyspnoea [Unknown]
  - Glossitis [Unknown]
  - Chest discomfort [Unknown]
  - Asthenia [Unknown]
  - Chest pain [Unknown]
  - Nasal discomfort [Unknown]
  - Cold sweat [Unknown]
  - Appendicitis [Unknown]
